FAERS Safety Report 25375337 (Version 1)
Quarter: 2025Q2

REPORT INFORMATION
  Report Type: Spontaneous
  Country: US (occurrence: US)
  Receive Date: 20250529
  Receipt Date: 20250529
  Transmission Date: 20250716
  Serious: No
  Sender: PFIZER
  Company Number: US-PFIZER INC-PV202500064822

PATIENT
  Age: 30 Year
  Sex: Male

DRUGS (1)
  1. NURTEC ODT [Suspect]
     Active Substance: RIMEGEPANT SULFATE
     Dosage: TAKE 1 TABLET (75 MG TOTAL) BY MOUTH EVERY OTHER DAY AS NEEDED
     Route: 048

REACTIONS (1)
  - Off label use [Unknown]
